FAERS Safety Report 5330504-9 (Version None)
Quarter: 2007Q2

REPORT INFORMATION
  Report Type: 
  Country: None (occurrence: None)
  Receive Date: 20070517
  Receipt Date: 20070504
  Transmission Date: 20071010
  Serious: Yes (Hospitalization)
  Sender: FDA-Public Use
  Company Number: 6033002

PATIENT
  Age: 38 Year
  Sex: Male

DRUGS (3)
  1. ALPRAZOLAM [Suspect]
     Indication: DRUG USE FOR UNKNOWN INDICATION
     Route: 048
  2. ZOLOFT [Suspect]
     Indication: DRUG USE FOR UNKNOWN INDICATION
     Route: 048
  3. LANSOPRAZOLE [Concomitant]

REACTIONS (1)
  - MYOCARDIAL INFARCTION [None]
